FAERS Safety Report 5804698-2 (Version None)
Quarter: 2008Q3

REPORT INFORMATION
  Report Type: 
  Country: None (occurrence: None)
  Receive Date: 20080709
  Receipt Date: 20080630
  Transmission Date: 20090109
  Serious: Yes (Hospitalization, Disabling)
  Sender: FDA-Public Use
  Company Number: US-MERCK-0704USA05898

PATIENT
  Age: 51 Year
  Sex: Female
  Weight: 45 kg

DRUGS (2)
  1. FOSAMAX [Suspect]
     Indication: OSTEOPOROSIS
     Route: 048
     Dates: start: 20020326, end: 20060719
  2. FOSAMAX [Suspect]
     Indication: OSTEOPENIA
     Route: 048
     Dates: start: 20020326, end: 20060719

REACTIONS (17)
  - ADVERSE EVENT [None]
  - ASTHMA [None]
  - CLOSTRIDIUM DIFFICILE COLITIS [None]
  - FACIAL PAIN [None]
  - HEADACHE [None]
  - IMPAIRED HEALING [None]
  - LACUNAR INFARCTION [None]
  - LYMPHADENOPATHY [None]
  - NASAL SEPTUM DEVIATION [None]
  - NECK PAIN [None]
  - ORAL INFECTION [None]
  - ORAL PAIN [None]
  - PYREXIA [None]
  - SALIVARY GLAND MASS [None]
  - TEMPOROMANDIBULAR JOINT SYNDROME [None]
  - TOOTH LOSS [None]
  - TOOTHACHE [None]
